FAERS Safety Report 14960643 (Version 2)
Quarter: 2018Q4

REPORT INFORMATION
  Report Type: Report from Study
  Country: US (occurrence: US)
  Receive Date: 20180531
  Receipt Date: 20181017
  Transmission Date: 20190204
  Serious: No
  Sender: FDA-Public Use
  Company Number: US-AMGEN-USASL2018003303

PATIENT
  Age: 63 Year
  Sex: Female

DRUGS (1)
  1. REPATHA [Suspect]
     Active Substance: EVOLOCUMAB
     Indication: HYPERCHOLESTEROLAEMIA
     Dosage: 140 MG, Q2WK
     Route: 065
     Dates: start: 2017

REACTIONS (10)
  - Incorrect route of product administration [Unknown]
  - Feeling abnormal [Not Recovered/Not Resolved]
  - Injection site bruising [Unknown]
  - Malaise [Unknown]
  - Injection site urticaria [Unknown]
  - Injection site swelling [Unknown]
  - Paranasal sinus discomfort [Unknown]
  - Oropharyngeal pain [Unknown]
  - Injection site haemorrhage [Unknown]
  - Bronchitis [Unknown]
